FAERS Safety Report 25021633 (Version 1)
Quarter: 2025Q1

REPORT INFORMATION
  Report Type: Report from Study
  Country: CA (occurrence: CA)
  Receive Date: 20250228
  Receipt Date: 20250228
  Transmission Date: 20250408
  Serious: Yes (Other)
  Sender: SANDOZ
  Company Number: CA-002147023-NVSC2023CA045297

PATIENT
  Sex: Male

DRUGS (3)
  1. HYRIMOZ [Suspect]
     Active Substance: ADALIMUMAB-ADAZ
     Indication: Ankylosing spondylitis
     Dosage: 40 MG, QW
     Route: 058
     Dates: start: 20230111
  2. HYRIMOZ [Suspect]
     Active Substance: ADALIMUMAB-ADAZ
     Route: 058
  3. CELEBREX [Concomitant]
     Active Substance: CELECOXIB
     Indication: Product used for unknown indication
     Route: 065

REACTIONS (14)
  - Ankylosing spondylitis [Unknown]
  - Surgery [Unknown]
  - Sacroiliitis [Unknown]
  - Morton^s neuralgia [Unknown]
  - Gait disturbance [Unknown]
  - Procedural pain [Unknown]
  - Mobility decreased [Unknown]
  - Peripheral swelling [Unknown]
  - Malaise [Unknown]
  - Pain in extremity [Unknown]
  - Back pain [Unknown]
  - Product dose omission issue [Unknown]
  - Product dose omission in error [Unknown]
  - Off label use [Unknown]
